FAERS Safety Report 24111196 (Version 1)
Quarter: 2024Q3

REPORT INFORMATION
  Report Type: Spontaneous
  Country: KR (occurrence: KR)
  Receive Date: 20240718
  Receipt Date: 20240718
  Transmission Date: 20241016
  Serious: Yes (Other)
  Sender: TAKEDA
  Company Number: KR-TAKEDA-2024TUS072686

PATIENT
  Sex: Male
  Weight: 79 kg

DRUGS (1)
  1. LANSOPRAZOLE [Suspect]
     Active Substance: LANSOPRAZOLE
     Indication: Evidence based treatment
     Dosage: 1 DOSAGE FORM, QD
     Route: 065
     Dates: start: 20230110, end: 20230110

REACTIONS (2)
  - Anaphylactic reaction [Recovered/Resolved]
  - Loss of consciousness [Recovered/Resolved]

NARRATIVE: CASE EVENT DATE: 20230110
